FAERS Safety Report 7917176-1 (Version None)
Quarter: 2011Q4

REPORT INFORMATION
  Report Type: 
  Country: None (occurrence: None)
  Receive Date: 20111116
  Receipt Date: 20111104
  Transmission Date: 20120403
  Serious: Yes (Hospitalization)
  Sender: FDA-Public Use
  Company Number: FR-SANOFI-AVENTIS-2011SA022472

PATIENT
  Age: 77 Year
  Sex: Female

DRUGS (10)
  1. CRESTOR [Suspect]
     Route: 048
     Dates: end: 20110210
  2. METHOTREXATE SODIUM [Suspect]
     Route: 062
     Dates: start: 20110119, end: 20110201
  3. LOSARTAN POTASSIUM AND HYDROCHLOROTHIAZIDE [Suspect]
     Route: 048
     Dates: end: 20110210
  4. ISOPTIN [Suspect]
     Route: 048
     Dates: end: 20110210
  5. METHOTREXATE SODIUM [Suspect]
     Route: 062
     Dates: start: 20101021, end: 20110118
  6. ASPIRIN [Suspect]
     Route: 048
     Dates: end: 20110210
  7. ZOLPIDEM TARTRATE [Suspect]
     Route: 048
     Dates: end: 20110210
  8. SPECIAFOLDINE [Concomitant]
     Route: 065
     Dates: end: 20110210
  9. PREDNISONE [Suspect]
     Route: 048
     Dates: end: 20110210
  10. RABEPRAZOLE SODIUM [Suspect]
     Route: 048
     Dates: end: 20110210

REACTIONS (5)
  - HYPOXIA [None]
  - INTERSTITIAL LUNG DISEASE [None]
  - HYPOCAPNIA [None]
  - PYREXIA [None]
  - INFLAMMATION [None]
